FAERS Safety Report 9397331 (Version 1)
Quarter: 2013Q3

REPORT INFORMATION
  Report Type: Spontaneous
  Country: US (occurrence: None)
  Receive Date: 20130708
  Receipt Date: 20130708
  Transmission Date: 20140515
  Serious: Yes (Hospitalization, Other)
  Sender: FDA-Public Use
  Company Number: AXC-2013-000294

PATIENT
  Age: 27 Year
  Sex: Male

DRUGS (10)
  1. ZENPEP [Suspect]
     Indication: PANCREATIC INSUFFICIENCY
     Dosage: AS NEEDED FOR SNACKS, INTRAGASTRIC
  2. IRON GLUCONATE [Concomitant]
  3. LACTULOSE [Concomitant]
  4. LEVOFLOXACIN [Concomitant]
  5. MAGNESIUM OXIDE (MAGNESIUM OXIDE) [Concomitant]
  6. METOCLOPRAMDIE (METOCLOPRAMDIE) [Concomitant]
  7. ONDANSETRAN (ONDANSETRAN HYDROCHLORIDE) [Concomitant]
  8. OXYCODONE (OXYCODONE) [Concomitant]
  9. PREDNISONE (PREDNISONE) [Concomitant]
  10. PEG /01543001/ (PEGINTERFERON ALFA-2B) [Concomitant]

REACTIONS (4)
  - Infective pulmonary exacerbation of cystic fibrosis [None]
  - Drug effect incomplete [None]
  - Feeding tube complication [None]
  - Food intolerance [None]
